FAERS Safety Report 20919682 (Version 12)
Quarter: 2023Q1

REPORT INFORMATION
  Report Type: Report from Study
  Country: CZ (occurrence: None)
  Receive Date: 20220606
  Receipt Date: 20230130
  Transmission Date: 20230417
  Serious: Yes (Hospitalization)
  Sender: FDA-Public Use
  Company Number: CZ-ROCHE-3105497

PATIENT
  Age: 43 Year
  Sex: Female
  Weight: 90 kg

DRUGS (28)
  1. ATEZOLIZUMAB [Suspect]
     Active Substance: ATEZOLIZUMAB
     Indication: HER2 positive breast cancer
     Dosage: ON 10/MAY/2022 RECEIVED MOST RECENT DOSE OF ATEZOLIZUMAB PRIOR TO AE AND SAE
     Route: 041
     Dates: start: 20220510
  2. ADO-TRASTUZUMAB EMTANSINE [Suspect]
     Active Substance: ADO-TRASTUZUMAB EMTANSINE
     Indication: HER2 positive breast cancer
     Route: 042
     Dates: start: 20220510
  3. BISOPROLOL FUMARATE [Concomitant]
     Active Substance: BISOPROLOL FUMARATE
     Indication: Tachycardia
     Dates: start: 20220503
  4. HYLAC [Concomitant]
     Dates: start: 20220526, end: 20220527
  5. PANTOPRAZOLE SODIUM [Concomitant]
     Active Substance: PANTOPRAZOLE SODIUM
     Dates: start: 20220528, end: 20220601
  6. CONTROLOC [Concomitant]
     Active Substance: PANTOPRAZOLE SODIUM
     Dates: start: 20220525, end: 20220527
  7. SODIUM CHLORIDE [Concomitant]
     Active Substance: SODIUM CHLORIDE
     Dates: start: 20220525, end: 20220606
  8. AUGMENTIN [Concomitant]
     Active Substance: AMOXICILLIN\CLAVULANATE POTASSIUM
     Dates: start: 20220525, end: 20220601
  9. NOVALGIN (CZECH REPUBLIC) [Concomitant]
     Indication: Arthralgia
     Dates: start: 20220525, end: 20220525
  10. PERFALGAN [Concomitant]
     Active Substance: ACETAMINOPHEN
     Indication: Pyrexia
     Dates: start: 20220526, end: 20220526
  11. ZOLPIDEM [Concomitant]
     Active Substance: ZOLPIDEM TARTRATE
     Dates: start: 20220517, end: 20220520
  12. ZOLPIDEM [Concomitant]
     Active Substance: ZOLPIDEM TARTRATE
     Dates: start: 20220526, end: 20220526
  13. ENOXAPARIN SODIUM [Concomitant]
     Active Substance: ENOXAPARIN SODIUM
     Dates: start: 20220525, end: 20220526
  14. NADROPARIN CALCIUM [Concomitant]
     Active Substance: NADROPARIN CALCIUM
     Dates: start: 20220530, end: 20220606
  15. DEXTROSE [Concomitant]
     Active Substance: DEXTROSE
     Dates: start: 20220525, end: 20220525
  16. BISULEPIN [Concomitant]
     Active Substance: BISULEPIN
     Dates: start: 20220527, end: 20220530
  17. BROMAZEPAM [Concomitant]
     Active Substance: BROMAZEPAM
     Dates: start: 20220527, end: 20220527
  18. BROMAZEPAM [Concomitant]
     Active Substance: BROMAZEPAM
     Dates: start: 20220601, end: 20220601
  19. CALCIUM CHLORIDE\MAGNESIUM CHLORIDE\MALIC ACID\POTASSIUM CHLORIDE\SODI [Concomitant]
     Active Substance: CALCIUM CHLORIDE\MAGNESIUM CHLORIDE\MALIC ACID\POTASSIUM CHLORIDE\SODIUM ACETATE\SODIUM CHLORIDE
  20. PREDNISONE [Concomitant]
     Active Substance: PREDNISONE
     Dates: start: 20220607, end: 20220609
  21. PREDNISONE [Concomitant]
     Active Substance: PREDNISONE
     Dates: start: 20220610, end: 20220612
  22. PREDNISONE [Concomitant]
     Active Substance: PREDNISONE
     Dates: start: 20220613, end: 20220615
  23. PREDNISONE [Concomitant]
     Active Substance: PREDNISONE
     Dates: start: 20220616, end: 20220618
  24. PREDNISONE [Concomitant]
     Active Substance: PREDNISONE
     Dates: start: 20220619, end: 20220621
  25. PREDNISONE [Concomitant]
     Active Substance: PREDNISONE
     Dates: start: 20220622, end: 20220624
  26. PREDNISONE [Concomitant]
     Active Substance: PREDNISONE
     Dates: start: 20220625, end: 20220627
  27. PREDNISONE [Concomitant]
     Active Substance: PREDNISONE
     Dates: start: 20220628, end: 20220630
  28. PREDNISONE [Concomitant]
     Active Substance: PREDNISONE
     Dates: start: 20220701, end: 20220703

REACTIONS (2)
  - Skin toxicity [Recovered/Resolved]
  - Myocarditis [Recovered/Resolved]

NARRATIVE: CASE EVENT DATE: 20220521
